FAERS Safety Report 14203469 (Version 1)
Quarter: 2017Q4

REPORT INFORMATION
  Report Type: Spontaneous
  Country: FR (occurrence: FR)
  Receive Date: 20171120
  Receipt Date: 20171120
  Transmission Date: 20180321
  Serious: Yes (Disabling)
  Sender: FDA-Public Use
  Company Number: FR-MERCK KGAA-2034612

PATIENT
  Age: 43 Year
  Sex: Female

DRUGS (3)
  1. PERINDOPRIL(PERINDOPRIL) [Concomitant]
  2. EBASTINE [Concomitant]
     Active Substance: EBASTINE
  3. NOVOTHYROX [Suspect]
     Active Substance: LEVOTHYROXINE SODIUM
     Indication: THYROID DISORDER
     Route: 048
     Dates: start: 20170303

REACTIONS (4)
  - Fatigue [Unknown]
  - Anger [Unknown]
  - Oedema peripheral [Unknown]
  - Blood thyroid stimulating hormone normal [Recovered/Resolved]

NARRATIVE: CASE EVENT DATE: 20170327
